FAERS Safety Report 10432415 (Version 1)
Quarter: 2014Q3

REPORT INFORMATION
  Report Type: Report from Study
  Country: US (occurrence: US)
  Receive Date: 20140905
  Receipt Date: 20140905
  Transmission Date: 20150326
  Serious: Yes (Other)
  Sender: FDA-Public Use
  Company Number: US-ROCHE-1456055

PATIENT
  Sex: Male
  Weight: 30.5 kg

DRUGS (1)
  1. NUTROPIN AQ [Suspect]
     Active Substance: SOMATROPIN
     Indication: GROWTH HORMONE DEFICIENCY
     Route: 058

REACTIONS (23)
  - Hypoglycaemia [Unknown]
  - Failure to thrive [Unknown]
  - Sinusitis [Unknown]
  - Vitamin D deficiency [Unknown]
  - Asthma [Unknown]
  - Anaemia [Unknown]
  - Nausea [Unknown]
  - Myalgia [Unknown]
  - Insulin-like growth factor increased [Unknown]
  - Polyuria [Unknown]
  - Gastrointestinal hypomotility [Unknown]
  - Gastrointestinal motility disorder [Unknown]
  - Urinary tract infection [Unknown]
  - Joint stiffness [Unknown]
  - Autonomic nervous system imbalance [Unknown]
  - Swelling [Unknown]
  - Blood glucose increased [Unknown]
  - Partial seizures [Unknown]
  - Anxiety [Unknown]
  - Tremor [Unknown]
  - Arthralgia [Unknown]
  - Carpal tunnel syndrome [Unknown]
  - Infection [Unknown]
